FAERS Safety Report 8431492-9 (Version None)
Quarter: 2012Q2

REPORT INFORMATION
  Report Type: 
  Country: None (occurrence: None)
  Receive Date: 20120607
  Receipt Date: 20120607
  Transmission Date: 20120825
  Serious: Yes (Life-Threatening)
  Sender: FDA-Public Use
  Company Number: None

PATIENT
  Age: 37 Year
  Sex: Female
  Weight: 81.6475 kg

DRUGS (1)
  1. AMLODIPINE [Suspect]

REACTIONS (4)
  - SYNCOPE [None]
  - FALL [None]
  - BLOOD PRESSURE DECREASED [None]
  - LIP INJURY [None]
